FAERS Safety Report 5368687-7 (Version None)
Quarter: 2007Q2

REPORT INFORMATION
  Report Type: 
  Country: None (occurrence: None)
  Receive Date: 20070625
  Receipt Date: 20070322
  Transmission Date: 20071010
  Serious: No
  Sender: FDA-Public Use
  Company Number: US-BRISTOL-MYERS SQUIBB COMPANY-13724000

PATIENT
  Sex: Female

DRUGS (1)
  1. ORENCIA [Suspect]
     Route: 042

REACTIONS (2)
  - EYE SWELLING [None]
  - STOMATITIS [None]
